FAERS Safety Report 11747262 (Version 1)
Quarter: 2015Q4

REPORT INFORMATION
  Report Type: Spontaneous
  Country: JP (occurrence: JP)
  Receive Date: 20151117
  Receipt Date: 20151117
  Transmission Date: 20160304
  Serious: Yes (Hospitalization)
  Sender: FDA-Public Use
  Company Number: JP-TEVA-608838ISR

PATIENT
  Age: 75 Year
  Sex: Male

DRUGS (4)
  1. PREDNISOLONE. [Suspect]
     Active Substance: PREDNISOLONE
     Indication: MICROSCOPIC POLYANGIITIS
     Dosage: 40 MG/DAY DECREASED TO 10 MG/DAY
     Route: 065
     Dates: start: 200706
  2. PREDNISOLONE. [Suspect]
     Active Substance: PREDNISOLONE
     Indication: MICROSCOPIC POLYANGIITIS
     Dosage: 20 MG/DAY
     Route: 065
     Dates: start: 200706
  3. PREDNISOLONE. [Suspect]
     Active Substance: PREDNISOLONE
     Indication: MICROSCOPIC POLYANGIITIS
     Dosage: 10 MG/DAY INCREASED TO 20 MG/DAY
     Route: 065
     Dates: start: 200706
  4. CYCLOPHOSPHAMIDE. [Suspect]
     Active Substance: CYCLOPHOSPHAMIDE
     Indication: MICROSCOPIC POLYANGIITIS
     Dosage: 50 MILLIGRAM DAILY;
     Route: 065
     Dates: start: 200706, end: 200911

REACTIONS (3)
  - Cellulitis [Recovered/Resolved]
  - Pleurisy [Recovered/Resolved]
  - Aspergillus infection [Recovered/Resolved]

NARRATIVE: CASE EVENT DATE: 200911
